FAERS Safety Report 14529483 (Version 1)
Quarter: 2018Q1

REPORT INFORMATION
  Report Type: Spontaneous
  Country: US (occurrence: US)
  Receive Date: 20180213
  Receipt Date: 20180213
  Transmission Date: 20180509
  Serious: Yes (Hospitalization)
  Sender: FDA-Public Use
  Company Number: None

PATIENT
  Age: 68 Year
  Sex: Male

DRUGS (2)
  1. VANCOMYCIN [Suspect]
     Active Substance: VANCOMYCIN
     Indication: PYELONEPHRITIS
     Route: 042
     Dates: start: 20170426, end: 20170427
  2. CIPROFLOXACIN. [Suspect]
     Active Substance: CIPROFLOXACIN
     Indication: PYELONEPHRITIS
     Route: 048
     Dates: start: 20170412, end: 20170508

REACTIONS (2)
  - Tubulointerstitial nephritis [None]
  - Nephritis [None]

NARRATIVE: CASE EVENT DATE: 20170424
